FAERS Safety Report 7171626-X (Version None)
Quarter: 2010Q4

REPORT INFORMATION
  Report Type: 
  Country: None (occurrence: None)
  Receive Date: 20101217
  Receipt Date: 20101215
  Transmission Date: 20110411
  Serious: Yes (Other)
  Sender: FDA-Public Use
  Company Number: ES-ABBOTT-10P-144-0691637-00

PATIENT
  Age: 33 Year
  Sex: Female

DRUGS (3)
  1. RITONAVIR [Suspect]
     Indication: ANTIRETROVIRAL THERAPY
     Dosage: 200 MG/DAY
     Route: 048
     Dates: start: 20090101
  2. DARUNAVIR ETHANOLATE [Suspect]
     Indication: ANTIRETROVIRAL THERAPY
     Dosage: 1200MG/DAY
     Route: 048
     Dates: start: 20090101
  3. COMBIVIR [Suspect]
     Indication: ANTIRETROVIRAL THERAPY
     Dosage: DAILY
     Route: 048
     Dates: start: 20090101

REACTIONS (1)
  - ABORTION SPONTANEOUS [None]
